FAERS Safety Report 20216371 (Version 1)
Quarter: 2021Q4

REPORT INFORMATION
  Report Type: Spontaneous
  Country: None (occurrence: CZ)
  Receive Date: 20211222
  Receipt Date: 20211222
  Transmission Date: 20220303
  Serious: Yes (Hospitalization, Other)
  Sender: FDA-Public Use
  Company Number: None

PATIENT
  Sex: Male

DRUGS (9)
  1. CYCLOPHOSPHAMIDE [Suspect]
     Active Substance: CYCLOPHOSPHAMIDE
     Indication: Blastic plasmacytoid dendritic cell neoplasia
     Dosage: UNK, CYCLIC, 8 CYCLES CYCLICAL
     Route: 065
  2. ETOPOSIDE [Suspect]
     Active Substance: ETOPOSIDE
     Indication: Blastic plasmacytoid dendritic cell neoplasia
     Dosage: UNK, CYCLIC, 8 CYCLES OF R-CHOEP REGIMEN CYCLICAL
     Route: 065
  3. DOXORUBICIN [Suspect]
     Active Substance: DOXORUBICIN
     Indication: Blastic plasmacytoid dendritic cell neoplasia
     Dosage: UNK, CYCLIC, 8 CYCLES OF R-CHOEP REGIMEN CYCLICAL
     Route: 065
  4. RITUXIMAB [Suspect]
     Active Substance: RITUXIMAB
     Indication: Product used for unknown indication
  5. PREDNISONE [Suspect]
     Active Substance: PREDNISONE
     Indication: Product used for unknown indication
  6. VINCRISTINE [Suspect]
     Active Substance: VINCRISTINE
     Indication: Blastic plasmacytoid dendritic cell neoplasia
     Dosage: UNK, CYCLIC, 8 CYCLES OF R-CHOEP REGIMEN CYCLICAL
     Route: 065
  7. VINCRISTINE [Suspect]
     Active Substance: VINCRISTINE
     Dosage: DOSE REDUCTION
     Route: 065
  8. CEFTRIAXONE [Concomitant]
     Active Substance: CEFTRIAXONE
     Indication: Evidence based treatment
     Dosage: UNK
     Route: 042
  9. AMIKACIN [Concomitant]
     Active Substance: AMIKACIN
     Indication: Evidence based treatment
     Dosage: UNK
     Route: 065

REACTIONS (10)
  - Optic ischaemic neuropathy [None]
  - Optic ischaemic neuropathy [None]
  - Thrombocytopenia [None]
  - Anaemia [None]
  - Haemorrhoidal haemorrhage [None]
  - Febrile neutropenia [None]
  - Pneumonia [None]
  - Neutropenia [None]
  - Product use in unapproved indication [None]
  - Condition aggravated [None]
